FAERS Safety Report 18895140 (Version 4)
Quarter: 2021Q1

REPORT INFORMATION
  Report Type: Spontaneous
  Country: US (occurrence: US)
  Receive Date: 20210215
  Receipt Date: 20210222
  Transmission Date: 20210420
  Serious: No
  Sender: FDA-Public Use
  Company Number: US-PFIZER INC-2021128105

PATIENT
  Age: 56 Year
  Sex: Female

DRUGS (4)
  1. DEPO?TESTOSTERONE [Suspect]
     Active Substance: TESTOSTERONE CYPIONATE
     Dosage: UNK
     Dates: start: 2014
  2. DEPO?TESTOSTERONE [Suspect]
     Active Substance: TESTOSTERONE CYPIONATE
     Dosage: 0.375 ML, (0.375 ML WHICH IS 75 MG, ONCE A MONTH)
     Route: 030
  3. DEPO?ESTRADIOL [Suspect]
     Active Substance: ESTRADIOL CYPIONATE
     Dosage: 0.6 ML
     Route: 058
     Dates: start: 2014
  4. DEPO?ESTRADIOL [Suspect]
     Active Substance: ESTRADIOL CYPIONATE
     Dosage: 0.9 ML, (ONCE A MONTH)
     Route: 058
     Dates: start: 2016

REACTIONS (4)
  - Poor quality product administered [Unknown]
  - Product use issue [Unknown]
  - Product complaint [Unknown]
  - Off label use [Unknown]
